FAERS Safety Report 6318674-7 (Version None)
Quarter: 2009Q3

REPORT INFORMATION
  Report Type: 
  Country: None (occurrence: None)
  Receive Date: 20090821
  Receipt Date: 20090812
  Transmission Date: 20100115
  Serious: Yes (Hospitalization)
  Sender: FDA-Public Use
  Company Number: AT-ABBOTT-09P-009-0590856-00

PATIENT
  Sex: Female
  Weight: 87 kg

DRUGS (4)
  1. HUMIRA [Suspect]
     Indication: CROHN'S DISEASE
     Route: 058
     Dates: start: 20090511, end: 20090715
  2. HUMIRA [Suspect]
     Route: 058
     Dates: start: 20090812
  3. CIPROFLOXACIN HCL [Concomitant]
     Indication: ANTIBIOTIC PROPHYLAXIS
     Dates: start: 20090726, end: 20090802
  4. NOVALGIN [Concomitant]
     Indication: ABDOMINAL PAIN
     Dates: start: 20090626, end: 20090802

REACTIONS (2)
  - ABSCESS INTESTINAL [None]
  - INTESTINAL STENOSIS [None]
